FAERS Safety Report 9350482 (Version 1)
Quarter: 2013Q2

REPORT INFORMATION
  Report Type: Spontaneous
  Country: US (occurrence: US)
  Receive Date: 20130617
  Receipt Date: 20130617
  Transmission Date: 20140414
  Serious: No
  Sender: FDA-Public Use
  Company Number: US-PFIZER INC-2013181150

PATIENT
  Age: 43 Year
  Sex: Female
  Weight: 81.63 kg

DRUGS (7)
  1. NEURONTIN [Suspect]
     Indication: NERVE INJURY
     Dosage: 800 MG, 3X/DAY
     Route: 048
     Dates: start: 2013, end: 2013
  2. NEURONTIN [Suspect]
     Dosage: 600 MG, 3X/DAY
     Route: 048
     Dates: start: 2013
  3. NEURONTIN [Suspect]
     Dosage: UNK, 3X/DAY
     Route: 048
  4. LORTAB [Concomitant]
     Dosage: UNK, 3X/DAY
  5. BACLOFEN [Concomitant]
     Dosage: 10 MG, 2X/DAY
  6. TRAZODONE [Concomitant]
     Dosage: 150 MG, 2X/DAY
  7. AMLODIPINE [Concomitant]
     Indication: HYPERTENSION
     Dosage: 10 MG, 1X/DAY

REACTIONS (2)
  - Off label use [Unknown]
  - Drug ineffective for unapproved indication [Unknown]
